FAERS Safety Report 9929798 (Version 2)
Quarter: 2014Q2

REPORT INFORMATION
  Report Type: Report from Study
  Country: US (occurrence: US)
  Receive Date: 20140227
  Receipt Date: 20140513
  Transmission Date: 20141212
  Serious: Yes (Hospitalization)
  Sender: FDA-Public Use
  Company Number: US-MYLANLABS-2014S1003755

PATIENT
  Sex: Female
  Weight: 67.13 kg

DRUGS (16)
  1. FENTANYL TRANSDERMAL SYSTEM [Suspect]
     Indication: PAIN
  2. HUMIRA [Suspect]
     Indication: RHEUMATOID ARTHRITIS
     Dates: start: 201310
  3. HUMIRA [Suspect]
     Indication: CROHN^S DISEASE
     Dates: start: 201310
  4. BENTYL [Concomitant]
     Indication: CROHN^S DISEASE
  5. CHOLESTYRAMINE [Concomitant]
     Indication: CROHN^S DISEASE
  6. CLONIDINE [Concomitant]
     Indication: BLOOD PRESSURE
  7. CYMBALTA [Concomitant]
     Indication: DEPRESSION
  8. FOLIC ACID [Concomitant]
     Indication: VITAMIN SUPPLEMENTATION
  9. HYDROCODONE [Concomitant]
     Indication: PAIN
  10. MARINOL /00897601/ [Concomitant]
     Indication: NAUSEA
  11. NEXIUM [Concomitant]
     Indication: GASTROOESOPHAGEAL REFLUX DISEASE
  12. ORAL CONTRACEPTIVE NOS [Concomitant]
     Indication: CONTRACEPTION
  13. NUCYNTA [Concomitant]
     Indication: PAIN
  14. ONDANSETRON [Concomitant]
     Indication: NAUSEA
  15. OXYCONTIN [Concomitant]
     Indication: PAIN
  16. REQUIP [Concomitant]
     Indication: RESTLESS LEGS SYNDROME

REACTIONS (1)
  - Pain management [Unknown]
